FAERS Safety Report 23106343 (Version 6)
Quarter: 2025Q3

REPORT INFORMATION
  Report Type: Spontaneous
  Country: CA (occurrence: CA)
  Receive Date: 20231025
  Receipt Date: 20250806
  Transmission Date: 20251020
  Serious: Yes (Death, Life-Threatening, Hospitalization, Disabling, Congenital Anomaly, Other)
  Sender: SANDOZ
  Company Number: CA-002147023-NVSC2023CA000968

PATIENT
  Age: 43 Year
  Sex: Female
  Weight: 68 kg

DRUGS (177)
  1. ADALIMUMAB [Suspect]
     Active Substance: ADALIMUMAB
     Indication: Rheumatoid arthritis
     Route: 058
  2. ADALIMUMAB [Suspect]
     Active Substance: ADALIMUMAB
     Route: 058
  3. ALENDRONATE SODIUM [Suspect]
     Active Substance: ALENDRONATE SODIUM
     Route: 048
  4. ALENDRONATE SODIUM [Suspect]
     Active Substance: ALENDRONATE SODIUM
     Indication: Rheumatoid arthritis
     Route: 065
  5. ALENDRONATE SODIUM [Suspect]
     Active Substance: ALENDRONATE SODIUM
     Route: 048
  6. ALENDRONATE SODIUM [Suspect]
     Active Substance: ALENDRONATE SODIUM
     Route: 065
  7. ALENDRONATE SODIUM [Suspect]
     Active Substance: ALENDRONATE SODIUM
     Route: 065
  8. AIMOVIG [Suspect]
     Active Substance: ERENUMAB-AOOE
     Indication: Migraine
     Route: 065
  9. ALENDRONIC ACID [Suspect]
     Active Substance: ALENDRONIC ACID
     Route: 048
  10. ALENDRONIC ACID [Suspect]
     Active Substance: ALENDRONIC ACID
     Route: 048
  11. ALENDRONIC ACID [Suspect]
     Active Substance: ALENDRONIC ACID
     Indication: Rheumatoid arthritis
     Route: 065
  12. ATOMOXETINE [Suspect]
     Active Substance: ATOMOXETINE
     Indication: Migraine
     Dosage: 1 DOSAGE FORM, QOD
     Route: 065
  13. CANDESARTAN [Suspect]
     Active Substance: CANDESARTAN
     Route: 048
  14. CANDESARTAN [Suspect]
     Active Substance: CANDESARTAN
     Indication: Migraine
     Route: 065
  15. CELECOXIB [Suspect]
     Active Substance: CELECOXIB
     Dosage: 2 MG, QD
     Route: 048
  16. CELECOXIB [Suspect]
     Active Substance: CELECOXIB
     Route: 065
  17. CELECOXIB [Suspect]
     Active Substance: CELECOXIB
     Dosage: 20 MG, QD
     Route: 048
  18. CELECOXIB [Suspect]
     Active Substance: CELECOXIB
     Route: 065
  19. CELECOXIB [Suspect]
     Active Substance: CELECOXIB
     Indication: Arthritis
     Route: 048
  20. COSENTYX [Suspect]
     Active Substance: SECUKINUMAB
     Indication: Psoriatic arthropathy
     Route: 065
  21. COSENTYX [Suspect]
     Active Substance: SECUKINUMAB
     Indication: Rheumatoid arthritis
  22. DICLOFENAC POTASSIUM [Suspect]
     Active Substance: DICLOFENAC POTASSIUM
     Indication: Product used for unknown indication
     Route: 065
  23. DICLOFENAC SODIUM [Suspect]
     Active Substance: DICLOFENAC SODIUM
     Indication: Product used for unknown indication
     Route: 065
  24. DICLOFENAC SODIUM [Suspect]
     Active Substance: DICLOFENAC SODIUM
     Route: 065
  25. DOXYCYCLINE HYCLATE [Suspect]
     Active Substance: DOXYCYCLINE HYCLATE
     Indication: Product used for unknown indication
     Route: 065
  26. ERELZI [Suspect]
     Active Substance: ETANERCEPT-SZZS
     Dosage: 50 MG, QW (1 EVERY 1 WEEKS)
     Route: 065
  27. ERELZI [Suspect]
     Active Substance: ETANERCEPT-SZZS
     Indication: Rheumatoid arthritis
     Route: 065
  28. ERELZI [Suspect]
     Active Substance: ETANERCEPT-SZZS
     Route: 065
  29. ERELZI [Suspect]
     Active Substance: ETANERCEPT-SZZS
     Route: 058
  30. ENBREL [Suspect]
     Active Substance: ETANERCEPT
     Route: 058
  31. ENBREL [Suspect]
     Active Substance: ETANERCEPT
     Dosage: 20 MG, QW
     Route: 058
  32. ENBREL [Suspect]
     Active Substance: ETANERCEPT
     Indication: Rheumatoid arthritis
     Dosage: 25 MG, QD
     Route: 048
  33. ENBREL [Suspect]
     Active Substance: ETANERCEPT
     Dosage: 25 MG, QD
     Route: 065
  34. ENBREL [Suspect]
     Active Substance: ETANERCEPT
     Route: 065
  35. ENBREL [Suspect]
     Active Substance: ETANERCEPT
     Indication: Psoriatic arthropathy
     Dosage: 50 MG, QW
     Route: 058
  36. ENBREL [Suspect]
     Active Substance: ETANERCEPT
     Dosage: 50 MG, QW
     Route: 058
  37. ENBREL [Suspect]
     Active Substance: ETANERCEPT
     Dosage: 50 MG, QD
     Route: 058
  38. ENBREL [Suspect]
     Active Substance: ETANERCEPT
     Route: 058
  39. ENBREL [Suspect]
     Active Substance: ETANERCEPT
     Route: 058
  40. ENBREL [Suspect]
     Active Substance: ETANERCEPT
     Indication: Psoriasis
     Dosage: UNK UNK, QW
     Route: 058
  41. ENBREL [Suspect]
     Active Substance: ETANERCEPT
     Route: 058
  42. ENBREL [Suspect]
     Active Substance: ETANERCEPT
     Route: 061
  43. ENBREL [Suspect]
     Active Substance: ETANERCEPT
     Route: 065
  44. FOLIC ACID [Suspect]
     Active Substance: FOLIC ACID
     Route: 048
  45. FOLIC ACID [Suspect]
     Active Substance: FOLIC ACID
     Route: 065
  46. FOLIC ACID [Suspect]
     Active Substance: FOLIC ACID
     Route: 065
  47. FOLIC ACID [Suspect]
     Active Substance: FOLIC ACID
     Route: 048
  48. FOLIC ACID [Suspect]
     Active Substance: FOLIC ACID
     Route: 065
  49. FOLIC ACID [Suspect]
     Active Substance: FOLIC ACID
     Route: 058
  50. FOLIC ACID [Suspect]
     Active Substance: FOLIC ACID
     Route: 065
  51. FOLIC ACID [Suspect]
     Active Substance: FOLIC ACID
     Route: 065
  52. FOLIC ACID [Suspect]
     Active Substance: FOLIC ACID
     Route: 065
  53. FOLIC ACID [Suspect]
     Active Substance: FOLIC ACID
     Route: 048
  54. FOLIC ACID [Suspect]
     Active Substance: FOLIC ACID
     Route: 065
  55. FOLIC ACID [Suspect]
     Active Substance: FOLIC ACID
     Route: 065
  56. FOLIC ACID [Suspect]
     Active Substance: FOLIC ACID
     Route: 065
  57. FOLIC ACID [Suspect]
     Active Substance: FOLIC ACID
     Route: 048
  58. FOLIC ACID [Suspect]
     Active Substance: FOLIC ACID
     Indication: Rheumatoid arthritis
     Route: 065
  59. FOLIC ACID [Suspect]
     Active Substance: FOLIC ACID
     Route: 065
  60. FOLIC ACID [Suspect]
     Active Substance: FOLIC ACID
     Dosage: 5 MG, Q24H ((1 EVERY 24 HOURS)
     Route: 065
  61. FOLIC ACID [Suspect]
     Active Substance: FOLIC ACID
     Route: 048
  62. FOLIC ACID [Suspect]
     Active Substance: FOLIC ACID
     Route: 065
  63. FOLIC ACID [Suspect]
     Active Substance: FOLIC ACID
     Route: 065
  64. FOLIC ACID [Suspect]
     Active Substance: FOLIC ACID
     Route: 065
  65. FOLIC ACID [Suspect]
     Active Substance: FOLIC ACID
     Route: 065
  66. FOLIC ACID [Suspect]
     Active Substance: FOLIC ACID
     Route: 048
  67. FOLIC ACID [Suspect]
     Active Substance: FOLIC ACID
     Route: 065
  68. FOLIC ACID [Suspect]
     Active Substance: FOLIC ACID
     Route: 065
  69. HYDROCORTISONE [Suspect]
     Active Substance: HYDROCORTISONE
     Indication: Rheumatoid arthritis
     Route: 065
  70. HYDROCORTISONE [Suspect]
     Active Substance: HYDROCORTISONE
     Route: 048
  71. HYDROCORTISONE [Suspect]
     Active Substance: HYDROCORTISONE
     Route: 050
  72. HYDROCORTISONE [Suspect]
     Active Substance: HYDROCORTISONE
     Route: 058
  73. INFLIXIMAB [Suspect]
     Active Substance: INFLIXIMAB
     Route: 042
  74. INFLIXIMAB [Suspect]
     Active Substance: INFLIXIMAB
     Indication: Psoriatic arthropathy
     Route: 042
  75. INFLIXIMAB [Suspect]
     Active Substance: INFLIXIMAB
     Indication: Rheumatoid arthritis
     Route: 042
  76. LEFLUNOMIDE [Suspect]
     Active Substance: LEFLUNOMIDE
     Dosage: 10 MG, QD
     Route: 065
  77. LEFLUNOMIDE [Suspect]
     Active Substance: LEFLUNOMIDE
     Dosage: 20 MG, QD
     Route: 065
  78. LEFLUNOMIDE [Suspect]
     Active Substance: LEFLUNOMIDE
     Indication: Rheumatoid arthritis
     Dosage: 20 MG, QD
     Route: 065
  79. LEFLUNOMIDE [Suspect]
     Active Substance: LEFLUNOMIDE
     Route: 065
  80. LEFLUNOMIDE [Suspect]
     Active Substance: LEFLUNOMIDE
     Route: 065
  81. LEFLUNOMIDE [Suspect]
     Active Substance: LEFLUNOMIDE
     Route: 048
  82. LEFLUNOMIDE [Suspect]
     Active Substance: LEFLUNOMIDE
     Route: 065
  83. LEFLUNOMIDE [Suspect]
     Active Substance: LEFLUNOMIDE
     Route: 065
  84. LEFLUNOMIDE [Suspect]
     Active Substance: LEFLUNOMIDE
     Route: 065
  85. METHOTREXATE [Suspect]
     Active Substance: METHOTREXATE
     Dosage: 1 G, BID
     Route: 065
  86. METHOTREXATE [Suspect]
     Active Substance: METHOTREXATE
     Dosage: 1 DF, QD
     Route: 048
  87. METHOTREXATE [Suspect]
     Active Substance: METHOTREXATE
     Dosage: 15 MG, QW
     Route: 048
  88. METHOTREXATE [Suspect]
     Active Substance: METHOTREXATE
     Route: 042
  89. METHOTREXATE [Suspect]
     Active Substance: METHOTREXATE
     Dosage: 1 G, BID
     Route: 048
  90. METHOTREXATE [Suspect]
     Active Substance: METHOTREXATE
     Route: 042
  91. METHOTREXATE [Suspect]
     Active Substance: METHOTREXATE
     Dosage: 20 MG, QW
     Route: 065
  92. METHOTREXATE [Suspect]
     Active Substance: METHOTREXATE
     Dosage: 20 MG, QD
     Route: 048
  93. METHOTREXATE [Suspect]
     Active Substance: METHOTREXATE
     Dosage: 20 MG, QD
     Route: 065
  94. METHOTREXATE [Suspect]
     Active Substance: METHOTREXATE
     Dosage: 20 MG, QD
     Route: 042
  95. METHOTREXATE [Suspect]
     Active Substance: METHOTREXATE
     Dosage: 20 MG, QD
     Route: 058
  96. METHOTREXATE [Suspect]
     Active Substance: METHOTREXATE
     Dosage: 20 MG, QD
     Route: 058
  97. METHOTREXATE [Suspect]
     Active Substance: METHOTREXATE
     Dosage: 20 MG, QD
     Route: 065
  98. METHOTREXATE [Suspect]
     Active Substance: METHOTREXATE
     Route: 013
  99. METHOTREXATE [Suspect]
     Active Substance: METHOTREXATE
     Route: 042
  100. METHOTREXATE [Suspect]
     Active Substance: METHOTREXATE
     Route: 042
  101. METHOTREXATE [Suspect]
     Active Substance: METHOTREXATE
     Route: 065
  102. METHOTREXATE [Suspect]
     Active Substance: METHOTREXATE
     Dosage: 25 MG, QW
     Route: 013
  103. METHOTREXATE [Suspect]
     Active Substance: METHOTREXATE
     Dosage: 25 MG, QW
     Route: 058
  104. METHOTREXATE [Suspect]
     Active Substance: METHOTREXATE
     Dosage: 25 MG, QW
     Route: 065
  105. METHOTREXATE [Suspect]
     Active Substance: METHOTREXATE
     Dosage: 25 MG, QW
     Route: 065
  106. METHOTREXATE [Suspect]
     Active Substance: METHOTREXATE
     Dosage: 25 MG, BID
     Route: 065
  107. METHOTREXATE [Suspect]
     Active Substance: METHOTREXATE
     Dosage: 25 MG, BID
     Route: 048
  108. METHOTREXATE [Suspect]
     Active Substance: METHOTREXATE
     Route: 013
  109. METHOTREXATE [Suspect]
     Active Substance: METHOTREXATE
     Route: 048
  110. METHOTREXATE [Suspect]
     Active Substance: METHOTREXATE
     Route: 058
  111. METHOTREXATE [Suspect]
     Active Substance: METHOTREXATE
     Route: 058
  112. METHOTREXATE [Suspect]
     Active Substance: METHOTREXATE
     Indication: Rheumatoid arthritis
     Route: 065
  113. METHOTREXATE [Suspect]
     Active Substance: METHOTREXATE
     Route: 013
  114. METHOTREXATE [Suspect]
     Active Substance: METHOTREXATE
     Route: 048
  115. METHOTREXATE [Suspect]
     Active Substance: METHOTREXATE
     Route: 042
  116. METHOTREXATE [Suspect]
     Active Substance: METHOTREXATE
     Route: 048
  117. METHOTREXATE [Suspect]
     Active Substance: METHOTREXATE
     Dosage: 25 MG, BID
     Route: 048
  118. METHOTREXATE [Suspect]
     Active Substance: METHOTREXATE
     Dosage: 500 MG, BID
     Route: 065
  119. METHOTREXATE [Suspect]
     Active Substance: METHOTREXATE
     Route: 042
  120. METHOTREXATE [Suspect]
     Active Substance: METHOTREXATE
     Route: 065
  121. METHOTREXATE [Suspect]
     Active Substance: METHOTREXATE
     Route: 048
  122. PANTOPRAZOLE [Suspect]
     Active Substance: PANTOPRAZOLE
     Route: 016
  123. PANTOPRAZOLE [Suspect]
     Active Substance: PANTOPRAZOLE
     Route: 048
  124. PANTOPRAZOLE [Suspect]
     Active Substance: PANTOPRAZOLE
     Indication: Rheumatoid arthritis
     Route: 065
  125. PREGABALIN [Suspect]
     Active Substance: PREGABALIN
     Indication: Fibromyalgia
     Route: 065
  126. RITUXIMAB [Suspect]
     Active Substance: RITUXIMAB
     Route: 040
  127. RITUXIMAB [Suspect]
     Active Substance: RITUXIMAB
     Route: 042
  128. RITUXIMAB [Suspect]
     Active Substance: RITUXIMAB
     Route: 043
  129. RITUXIMAB [Suspect]
     Active Substance: RITUXIMAB
     Route: 058
  130. RITUXIMAB [Suspect]
     Active Substance: RITUXIMAB
     Indication: Rheumatoid arthritis
     Route: 065
  131. RITUXIMAB [Suspect]
     Active Substance: RITUXIMAB
     Route: 065
  132. RITUXIMAB [Suspect]
     Active Substance: RITUXIMAB
     Route: 065
  133. RITUXIMAB [Suspect]
     Active Substance: RITUXIMAB
     Route: 065
  134. RITUXIMAB [Suspect]
     Active Substance: RITUXIMAB
     Route: 065
  135. RITUXIMAB [Suspect]
     Active Substance: RITUXIMAB
     Route: 040
  136. RITUXIMAB [Suspect]
     Active Substance: RITUXIMAB
     Route: 065
  137. RITUXIMAB [Suspect]
     Active Substance: RITUXIMAB
     Route: 065
  138. SOLU-MEDROL [Suspect]
     Active Substance: METHYLPREDNISOLONE SODIUM SUCCINATE
     Indication: Product used for unknown indication
     Route: 048
  139. SULFASALAZINE [Suspect]
     Active Substance: SULFASALAZINE
     Dosage: 1 G, QD
     Route: 065
  140. SULFASALAZINE [Suspect]
     Active Substance: SULFASALAZINE
     Dosage: 1 G, BID
     Route: 048
  141. SULFASALAZINE [Suspect]
     Active Substance: SULFASALAZINE
     Dosage: 1 DF, BID
     Route: 048
  142. SULFASALAZINE [Suspect]
     Active Substance: SULFASALAZINE
     Route: 048
  143. SULFASALAZINE [Suspect]
     Active Substance: SULFASALAZINE
     Indication: Rheumatoid arthritis
     Dosage: 1000 MG, BID
     Route: 048
  144. SULFASALAZINE [Suspect]
     Active Substance: SULFASALAZINE
     Dosage: 1000 MG, BID
     Route: 065
  145. SULFASALAZINE [Suspect]
     Active Substance: SULFASALAZINE
     Route: 065
  146. SULFASALAZINE [Suspect]
     Active Substance: SULFASALAZINE
     Dosage: 2 G, QD
     Route: 048
  147. SULFASALAZINE [Suspect]
     Active Substance: SULFASALAZINE
     Dosage: 2 G, BID
     Route: 048
  148. SULFASALAZINE [Suspect]
     Active Substance: SULFASALAZINE
     Route: 065
  149. SULFASALAZINE [Suspect]
     Active Substance: SULFASALAZINE
     Route: 048
  150. SULFASALAZINE [Suspect]
     Active Substance: SULFASALAZINE
     Dosage: 300 UNK, QD
     Route: 065
  151. SULFASALAZINE [Suspect]
     Active Substance: SULFASALAZINE
     Dosage: UNK UNK, BID
     Route: 048
  152. SULFASALAZINE [Suspect]
     Active Substance: SULFASALAZINE
     Route: 048
  153. SULFASALAZINE [Suspect]
     Active Substance: SULFASALAZINE
     Route: 058
  154. SULFASALAZINE [Suspect]
     Active Substance: SULFASALAZINE
     Route: 065
  155. VOLTAREN [Suspect]
     Active Substance: DICLOFENAC SODIUM
     Indication: Product used for unknown indication
     Route: 065
  156. DICLOFENAC DIETHYLAMINE [Suspect]
     Active Substance: DICLOFENAC DIETHYLAMINE
     Indication: Product used for unknown indication
     Route: 065
  157. XELJANZ [Suspect]
     Active Substance: TOFACITINIB CITRATE
     Route: 065
  158. XELJANZ [Suspect]
     Active Substance: TOFACITINIB CITRATE
     Dosage: 4 MG, BID
     Route: 065
  159. XELJANZ [Suspect]
     Active Substance: TOFACITINIB CITRATE
     Dosage: 5 MG, QD
     Route: 048
  160. XELJANZ [Suspect]
     Active Substance: TOFACITINIB CITRATE
     Dosage: 5 MG, QD
     Route: 065
  161. XELJANZ [Suspect]
     Active Substance: TOFACITINIB CITRATE
     Indication: Rheumatoid arthritis
     Dosage: 5 MG, BID
     Route: 048
  162. XELJANZ [Suspect]
     Active Substance: TOFACITINIB CITRATE
     Dosage: 5 MG, BID
     Route: 065
  163. XELJANZ [Suspect]
     Active Substance: TOFACITINIB CITRATE
     Route: 048
  164. XELJANZ [Suspect]
     Active Substance: TOFACITINIB CITRATE
     Route: 048
  165. XELJANZ [Suspect]
     Active Substance: TOFACITINIB CITRATE
     Route: 065
  166. ATIVAN [Concomitant]
     Active Substance: LORAZEPAM
     Indication: Anxiety
     Route: 065
  167. ATIVAN [Concomitant]
     Active Substance: LORAZEPAM
     Indication: Product used for unknown indication
     Route: 065
  168. CAFFEINE [Concomitant]
     Active Substance: CAFFEINE
     Indication: Product used for unknown indication
     Route: 065
  169. CAFFEINE [Concomitant]
     Active Substance: CAFFEINE
     Route: 065
  170. CALCIUM [Concomitant]
     Active Substance: CALCIUM
     Indication: Product used for unknown indication
     Route: 065
  171. HYRIMOZ [Concomitant]
     Active Substance: ADALIMUMAB-ADAZ
     Indication: Product used for unknown indication
     Route: 058
  172. MELOXICAM [Concomitant]
     Active Substance: MELOXICAM
     Indication: Product used for unknown indication
     Route: 065
  173. PIROXICAM [Concomitant]
     Active Substance: PIROXICAM
     Indication: Product used for unknown indication
     Route: 065
  174. RAMIPRIL [Concomitant]
     Active Substance: RAMIPRIL
     Indication: Rheumatoid arthritis
     Route: 016
  175. RAMIPRIL [Concomitant]
     Active Substance: RAMIPRIL
     Route: 042
  176. RAMIPRIL [Concomitant]
     Active Substance: RAMIPRIL
     Indication: Product used for unknown indication
     Route: 065
  177. RAMIPRIL [Concomitant]
     Active Substance: RAMIPRIL
     Route: 042

REACTIONS (55)
  - Malaise [Fatal]
  - Memory impairment [Fatal]
  - Decreased appetite [Fatal]
  - Migraine [Fatal]
  - Blepharospasm [Fatal]
  - Epilepsy [Fatal]
  - Arthropathy [Fatal]
  - Drug tolerance decreased [Fatal]
  - Back disorder [Fatal]
  - C-reactive protein abnormal [Fatal]
  - Coeliac disease [Fatal]
  - Crohn^s disease [Fatal]
  - Drug-induced liver injury [Fatal]
  - Dyspnoea [Fatal]
  - Ear infection [Fatal]
  - Exostosis [Fatal]
  - Fluid retention [Fatal]
  - Gastrointestinal disorder [Fatal]
  - General symptom [Fatal]
  - Laryngitis [Fatal]
  - Loss of personal independence in daily activities [Fatal]
  - Myositis [Fatal]
  - Osteoporosis [Fatal]
  - Pancreatitis [Fatal]
  - Porphyria acute [Fatal]
  - Pustular psoriasis [Fatal]
  - Rash vesicular [Fatal]
  - Rectal haemorrhage [Fatal]
  - Subcutaneous drug absorption impaired [Fatal]
  - Treatment noncompliance [Fatal]
  - Visual impairment [Fatal]
  - Weight fluctuation [Fatal]
  - X-ray abnormal [Fatal]
  - Ill-defined disorder [Fatal]
  - Laboratory test abnormal [Fatal]
  - Medication error [Fatal]
  - Condition aggravated [Fatal]
  - Rheumatoid factor positive [Fatal]
  - Gastrooesophageal reflux disease [Fatal]
  - Taste disorder [Fatal]
  - Rheumatic fever [Fatal]
  - Pain [Fatal]
  - Swollen joint count increased [Fatal]
  - Infusion related reaction [Fatal]
  - Therapeutic product effect incomplete [Fatal]
  - Treatment failure [Fatal]
  - Drug ineffective [Fatal]
  - Inappropriate schedule of product administration [Fatal]
  - Drug ineffective for unapproved indication [Fatal]
  - Product use issue [Fatal]
  - Contraindicated product administered [Fatal]
  - Product quality issue [Fatal]
  - Product use in unapproved indication [Fatal]
  - Intentional product misuse [Fatal]
  - Off label use [Fatal]
